FAERS Safety Report 5193096-3 (Version None)
Quarter: 2006Q4

REPORT INFORMATION
  Report Type: 
  Country: None (occurrence: None)
  Receive Date: 20061228
  Receipt Date: 20060420
  Transmission Date: 20070319
  Serious: No
  Sender: FDA-Public Use
  Company Number: US-GLAXOSMITHKLINE-A0602666A

PATIENT
  Age: 65 Year
  Sex: Male

DRUGS (7)
  1. AVODART [Suspect]
     Indication: BENIGN PROSTATIC HYPERPLASIA
     Dosage: 1CAP IN THE MORNING
     Route: 048
     Dates: start: 20060319
  2. CADUET [Concomitant]
  3. LISINOPRIL [Concomitant]
  4. AVAPRO [Concomitant]
  5. ATENOLOL [Concomitant]
  6. SYNTHROID [Concomitant]
  7. ANDROGEL [Concomitant]

REACTIONS (1)
  - FATIGUE [None]
